FAERS Safety Report 11654541 (Version 1)
Quarter: 2015Q4

REPORT INFORMATION
  Report Type: Spontaneous
  Country: CN (occurrence: CN)
  Receive Date: 20151023
  Receipt Date: 20151023
  Transmission Date: 20160304
  Serious: Yes (Hospitalization, Other)
  Sender: FDA-Public Use
  Company Number: CN-BAYER-2015-443246

PATIENT
  Age: 32 Year
  Sex: Male
  Weight: 55 kg

DRUGS (2)
  1. GLUCOBAY [Suspect]
     Active Substance: ACARBOSE
     Indication: HYPERGLYCAEMIA
     Dosage: 100 MG, TID
     Route: 048
     Dates: start: 20150408, end: 20150414
  2. THIOCTIC ACID [Concomitant]
     Active Substance: THIOCTIC ACID
     Dosage: 0.6 G, QD
     Route: 041
     Dates: start: 20150408, end: 20150414

REACTIONS (1)
  - Jaundice acholuric [Recovering/Resolving]

NARRATIVE: CASE EVENT DATE: 20150424
